FAERS Safety Report 15112460 (Version 4)
Quarter: 2019Q1

REPORT INFORMATION
  Report Type: Spontaneous
  Country: GB (occurrence: GB)
  Receive Date: 20180705
  Receipt Date: 20190107
  Transmission Date: 20190417
  Serious: Yes (Other)
  Sender: FDA-Public Use
  Company Number: PHHY2018GB035777

PATIENT
  Age: 69 Year
  Sex: Male
  Weight: 73.2 kg

DRUGS (3)
  1. OMEPRAZOLE SANDOZ [Concomitant]
     Active Substance: OMEPRAZOLE
     Indication: HIATUS HERNIA
     Dosage: 20 MG, UNK (YELLOW CAPSULES)
     Route: 048
     Dates: end: 201802
  2. OMEPRAZOLE SANDOZ [Suspect]
     Active Substance: OMEPRAZOLE
     Indication: HIATUS HERNIA
     Dosage: 20 MG, UNK (WHITE CAPSULES)
     Route: 048
     Dates: start: 201802, end: 20180520
  3. ATORVASTATIN [Concomitant]
     Active Substance: ATORVASTATIN
     Indication: PRODUCT USED FOR UNKNOWN INDICATION
     Dosage: UNK
     Route: 065

REACTIONS (3)
  - Duodenal ulcer [Recovering/Resolving]
  - Dyspepsia [Recovering/Resolving]
  - Drug ineffective [Recovering/Resolving]

NARRATIVE: CASE EVENT DATE: 201802
